FAERS Safety Report 17252727 (Version 1)
Quarter: 2020Q1

REPORT INFORMATION
  Report Type: Spontaneous
  Country: US (occurrence: US)
  Receive Date: 20200109
  Receipt Date: 20200109
  Transmission Date: 20200409
  Serious: No
  Sender: FDA-Public Use
  Company Number: US-OPTINOSE US, INC-2019OPT000924

PATIENT
  Age: 42 Year
  Sex: Female

DRUGS (1)
  1. XHANCE [Suspect]
     Active Substance: FLUTICASONE PROPIONATE
     Indication: CHRONIC SINUSITIS
     Route: 045
     Dates: start: 201902

REACTIONS (4)
  - Ocular discomfort [Unknown]
  - Eyelid retraction [Unknown]
  - Migraine [Not Recovered/Not Resolved]
  - Product use in unapproved indication [Unknown]
